FAERS Safety Report 4471043-7 (Version None)
Quarter: 2004Q4

REPORT INFORMATION
  Report Type: 
  Country: None (occurrence: None)
  Receive Date: 20041011
  Receipt Date: 20040927
  Transmission Date: 20050328
  Serious: Yes (Life-Threatening)
  Sender: FDA-Public Use
  Company Number: 2004/0463

PATIENT
  Age: 61 Year
  Sex: Male

DRUGS (4)
  1. EPIVIR [Suspect]
     Indication: HIV INFECTION
     Dosage: 150MG TWICE PER DAY
     Route: 048
     Dates: start: 20010101
  2. VIRAMUNE [Suspect]
     Indication: HIV INFECTION
     Dosage: 200MG TWICE PER DAY
     Route: 048
     Dates: start: 20010101
  3. VIDEX [Suspect]
     Indication: HIV INFECTION
     Dosage: 400MG PER DAY
     Route: 048
     Dates: start: 20010101
  4. PROLEUKIN [Suspect]
     Indication: HIV INFECTION
     Dosage: 4.5U TWICE PER DAY
     Route: 058
     Dates: start: 20030715, end: 20030719

REACTIONS (2)
  - CHOLESTASIS [None]
  - MITOCHONDRIAL CYTOPATHY [None]
